FAERS Safety Report 11756072 (Version 2)
Quarter: 2017Q2

REPORT INFORMATION
  Report Type: Spontaneous
  Country: US (occurrence: US)
  Receive Date: 20151119
  Receipt Date: 20170418
  Transmission Date: 20170829
  Serious: No
  Sender: FDA-Public Use
  Company Number: US-ALLERGAN-1519709US

PATIENT
  Sex: Female

DRUGS (2)
  1. ALPHAGAN P [Suspect]
     Active Substance: BRIMONIDINE TARTRATE
     Indication: OPEN ANGLE GLAUCOMA
     Dosage: UNK
     Route: 047
     Dates: start: 2005
  2. LUMIGAN [Suspect]
     Active Substance: BIMATOPROST
     Indication: OPEN ANGLE GLAUCOMA
     Dosage: UNK
     Route: 047
     Dates: start: 2005, end: 20170330

REACTIONS (10)
  - Stress [Not Recovered/Not Resolved]
  - Headache [Not Recovered/Not Resolved]
  - Peripheral swelling [Unknown]
  - Aphonia [Unknown]
  - Intraocular pressure increased [Not Recovered/Not Resolved]
  - Drug dose omission [Unknown]
  - Hypertension [Not Recovered/Not Resolved]
  - Visual acuity reduced [Unknown]
  - Blood glucose increased [Not Recovered/Not Resolved]
  - Eye pain [Not Recovered/Not Resolved]
